FAERS Safety Report 8323299-8 (Version None)
Quarter: 2012Q2

REPORT INFORMATION
  Report Type: 
  Country: None (occurrence: None)
  Receive Date: 20120430
  Receipt Date: 20120429
  Transmission Date: 20120825
  Serious: Yes (Other)
  Sender: FDA-Public Use
  Company Number: US-PFIZER INC-2012105443

PATIENT
  Sex: Female

DRUGS (6)
  1. CHANTIX [Suspect]
     Dosage: 1MG
     Dates: start: 20120401
  2. PERCOCET [Concomitant]
     Indication: PAIN
     Dosage: UNK
  3. ACETYLSALICYLIC ACID [Concomitant]
     Dosage: 81 MG
  4. CLONAZEPAM [Concomitant]
     Indication: ANXIETY
     Dosage: 1 MG, 3X/DAY
  5. PROZAC [Concomitant]
     Indication: DEPRESSION
     Dosage: 3 MG, DAILY
  6. CHANTIX [Suspect]
     Indication: SMOKING CESSATION THERAPY
     Dosage: 0.5 MG, DAILY
     Dates: start: 20120419

REACTIONS (5)
  - ANXIETY [None]
  - ABNORMAL DREAMS [None]
  - FRUSTRATION [None]
  - DEPRESSION [None]
  - SLEEP DISORDER [None]
